FAERS Safety Report 17543839 (Version 1)
Quarter: 2020Q1

REPORT INFORMATION
  Report Type: Spontaneous
  Country: US (occurrence: US)
  Receive Date: 20200316
  Receipt Date: 20200316
  Transmission Date: 20200409
  Serious: No
  Sender: FDA-Public Use
  Company Number: NVSC2020US073053

PATIENT
  Age: 56 Year
  Sex: Female

DRUGS (5)
  1. MOMETASONE [Suspect]
     Active Substance: MOMETASONE
     Indication: RASH PRURITIC
     Dosage: UNK
     Route: 065
  2. PIMECROLIMUS. [Suspect]
     Active Substance: PIMECROLIMUS
     Indication: RASH PRURITIC
     Dosage: UNK
     Route: 065
  3. TRIAMCINOLONE [Suspect]
     Active Substance: TRIAMCINOLONE
     Indication: RASH PRURITIC
     Dosage: UNK
     Route: 065
  4. DESONIDE. [Suspect]
     Active Substance: DESONIDE
     Indication: RASH PRURITIC
     Dosage: UNK
     Route: 065
  5. TACROLIMUS. [Suspect]
     Active Substance: TACROLIMUS
     Indication: RASH PRURITIC
     Dosage: UNK
     Route: 065

REACTIONS (2)
  - Product use in unapproved indication [Unknown]
  - Drug ineffective [Unknown]
